FAERS Safety Report 8918946 (Version 3)
Quarter: 2012Q4

REPORT INFORMATION
  Report Type: 
  Country: DE (occurrence: DE)
  Receive Date: 20121121
  Receipt Date: 20121226
  Transmission Date: 20130627
  Serious: Yes (Other)
  Sender: FDA-Public Use
  Company Number: DE-JNJFOC-20121105546

PATIENT
  Sex: Female

DRUGS (2)
  1. STELARA [Suspect]
     Indication: PSORIASIS
     Route: 058
  2. ECURAL [Concomitant]
     Indication: PSORIASIS
     Dosage: externally
     Route: 065
     Dates: start: 2007

REACTIONS (2)
  - Leukopenia [Unknown]
  - Blood creatinine increased [Unknown]
